FAERS Safety Report 5041484-8 (Version None)
Quarter: 2006Q2

REPORT INFORMATION
  Report Type: 
  Country: None (occurrence: None)
  Receive Date: 20060628
  Receipt Date: 20060615
  Transmission Date: 20061013
  Serious: Yes (Other)
  Sender: FDA-Public Use
  Company Number: HQWYE411422JUL05

PATIENT
  Age: 76 Year
  Sex: Female
  Weight: 47.3 kg

DRUGS (4)
  1. MYLOTARG [Suspect]
     Indication: ACUTE MYELOID LEUKAEMIA
     Dosage: SEE IMAGE
     Dates: start: 20050428, end: 20050428
  2. MYLOTARG [Suspect]
     Indication: ACUTE MYELOID LEUKAEMIA
     Dosage: SEE IMAGE
     Dates: start: 20050512, end: 20050512
  3. .... [Suspect]
  4. HYDREA [Concomitant]

REACTIONS (2)
  - INFUSION RELATED REACTION [None]
  - PYREXIA [None]
